FAERS Safety Report 4502359-3 (Version None)
Quarter: 2004Q4

REPORT INFORMATION
  Report Type: 
  Country: None (occurrence: None)
  Receive Date: 20041110
  Receipt Date: 20041028
  Transmission Date: 20050328
  Serious: Yes (Other)
  Sender: FDA-Public Use
  Company Number: 2004034450

PATIENT
  Age: 61 Year
  Sex: Female

DRUGS (6)
  1. LIPITOR [Suspect]
     Indication: DYSLIPIDAEMIA
     Dosage: 10 MG (10 MG, 1 IN 1 D), ORAL
     Route: 048
     Dates: start: 19980501
  2. ENALAPRIL (ENALAPRIL) [Concomitant]
  3. ATENOLOL [Concomitant]
  4. PROPATYLNITRATE (PROPATYLNITRATE) [Concomitant]
  5. ASPIRIN [Concomitant]
  6. ESTRADIOL [Concomitant]

REACTIONS (7)
  - BENIGN RENAL NEOPLASM [None]
  - BONE PAIN [None]
  - DIVERTICULUM [None]
  - GAIT DISTURBANCE [None]
  - GASTROINTESTINAL NEOPLASM [None]
  - HAEMORRHAGE [None]
  - RENAL PAIN [None]
